FAERS Safety Report 8434932 (Version 5)
Quarter: 2013Q3

REPORT INFORMATION
  Report Type: Spontaneous
  Country: US (occurrence: US)
  Receive Date: 20120301
  Receipt Date: 20130828
  Transmission Date: 20140515
  Serious: Yes (Other)
  Sender: FDA-Public Use
  Company Number: US-PFIZER INC-2012053415

PATIENT
  Age: 66 Year
  Sex: Female
  Weight: 83 kg

DRUGS (9)
  1. PROTONIX [Suspect]
     Indication: HIATUS HERNIA
     Dosage: 40 MG, 1X/DAY
     Route: 048
  2. PROTONIX [Suspect]
     Indication: GASTROOESOPHAGEAL REFLUX DISEASE
  3. ASPIRINE [Suspect]
     Dosage: UNK
  4. PROCARDIA XL [Concomitant]
     Indication: HYPERTENSION
     Dosage: UNK
  5. DIOVAN (VALSARTAN) [Concomitant]
     Indication: HYPERTENSION
     Dosage: 160 MG,DAILY
  6. SYNTHROID [Concomitant]
     Indication: THYROID DISORDER
     Dosage: 150 UG,DAILY
  7. PRAVASTATIN [Concomitant]
     Indication: BLOOD CHOLESTEROL INCREASED
     Dosage: 40 MG,DAILY
  8. WARFARIN [Concomitant]
     Indication: ANTICOAGULANT THERAPY
     Dosage: 5 MG,DAILY
  9. INSULIN [Concomitant]
     Dosage: UNK

REACTIONS (8)
  - Gastric haemorrhage [Unknown]
  - Myocardial infarction [Unknown]
  - Diabetic neuropathy [Unknown]
  - Hypertension [Unknown]
  - Blood cholesterol increased [Unknown]
  - Nervousness [Unknown]
  - Weight fluctuation [Unknown]
  - Memory impairment [Unknown]
